FAERS Safety Report 19279595 (Version 2)
Quarter: 2021Q2

REPORT INFORMATION
  Report Type: Spontaneous
  Country: NL (occurrence: NL)
  Receive Date: 20210520
  Receipt Date: 20210607
  Transmission Date: 20210717
  Serious: Yes (Other)
  Sender: FDA-Public Use
  Company Number: NL-PFIZER INC-2021327955

PATIENT
  Age: 51 Year
  Sex: Female
  Weight: 101 kg

DRUGS (14)
  1. INFLUENZA VACCINE [Concomitant]
     Active Substance: INFLUENZA VIRUS VACCINE
     Dosage: 1 DF
  2. VOLTAREN [DICLOFENAC DIETHYLAMINE] [Concomitant]
     Active Substance: DICLOFENAC DIETHYLAMINE
     Indication: RHEUMATIC DISORDER
  3. THYRAX [LEVOTHYROXINE] [Concomitant]
     Indication: AUTOIMMUNE THYROID DISORDER
     Dosage: 0.125 MG, 1X/DAY
  4. PARACETAMOL [Concomitant]
     Active Substance: ACETAMINOPHEN
     Indication: PAIN
     Dosage: 500 UNK (2X500 MULTIPLE TIMES IN DAY)
  5. METHOTREXATE SODIUM. [Suspect]
     Active Substance: METHOTREXATE SODIUM
     Indication: RHEUMATOID ARTHRITIS
     Dosage: 1 DF, WEEKLY (QW (6 TABLETS))
     Dates: start: 201909
  6. FLU VACCINE VII [Suspect]
     Active Substance: INFLUENZA VIRUS VACCINE
     Indication: IMMUNISATION
     Dosage: 1 DF
     Dates: start: 20201110, end: 20201110
  7. VAXIGRIPTETRA [Suspect]
     Active Substance: INFLUENZA VIRUS VACCINE QUADRIVALENT TYPE A+B
     Indication: PRODUCT USED FOR UNKNOWN INDICATION
     Dosage: UNK
     Dates: start: 20201110, end: 20201110
  8. SALAZOPYRINE [Suspect]
     Active Substance: SULFASALAZINE
     Dosage: 500 MG, 2X/DAY ((2X PER DAY 2 AND 1 TABLET (BUILD?UP))
     Dates: start: 20191117
  9. SALAZOPYRINE [Suspect]
     Active Substance: SULFASALAZINE
     Dosage: 500 MG, 2X/DAY (2X PER DAY 1 TABLET)
     Dates: end: 20210226
  10. NAPROXEN. [Suspect]
     Active Substance: NAPROXEN
     Indication: INFLAMMATORY PAIN
     Dosage: 500 UNK
  11. SALAZOPYRINE [Suspect]
     Active Substance: SULFASALAZINE
     Indication: RHEUMATOID ARTHRITIS
     Dosage: 3 DF
     Dates: start: 20191117
  12. SALAZOPYRINE [Suspect]
     Active Substance: SULFASALAZINE
     Dosage: 3 DF
     Dates: start: 20191117
  13. SALAZOPYRINE [Suspect]
     Active Substance: SULFASALAZINE
     Dosage: 500 MG, 2X/DAY ((2X PER DAY 2 AND 1 TABLET (BUILD?UP))
     Dates: start: 20191117
  14. THYRAX [LEVOTHYROXINE] [Concomitant]
     Indication: THYROID GLAND INJURY

REACTIONS (15)
  - Urticaria [Recovered/Resolved]
  - Lacrimation increased [Unknown]
  - Blood test abnormal [Unknown]
  - Epistaxis [Unknown]
  - Burning feet syndrome [Recovered/Resolved]
  - Hypotension [Unknown]
  - Pharyngeal swelling [Recovering/Resolving]
  - Muscle strength abnormal [Unknown]
  - Increased viscosity of upper respiratory secretion [Unknown]
  - Drug ineffective [Unknown]
  - Neuropathy peripheral [Recovering/Resolving]
  - Inflammation [Recovered/Resolved]
  - Therapeutic response unexpected [Recovered/Resolved]
  - Myalgia [Unknown]
  - Oropharyngeal pain [Unknown]

NARRATIVE: CASE EVENT DATE: 2019
